FAERS Safety Report 6593066-4 (Version None)
Quarter: 2010Q1

REPORT INFORMATION
  Report Type: 
  Country: None (occurrence: None)
  Receive Date: 20100222
  Receipt Date: 20100215
  Transmission Date: 20100710
  Serious: Yes (Hospitalization, Disabling)
  Sender: FDA-Public Use
  Company Number: RO-MPIJNJ-2010-01239

PATIENT

DRUGS (3)
  1. VELCADE [Suspect]
     Indication: MULTIPLE MYELOMA
     Dosage: UNK
     Route: 042
     Dates: start: 20080620, end: 20081222
  2. DEXAMETHASONE [Concomitant]
     Indication: MULTIPLE MYELOMA
     Dosage: 16 MG, UNK
     Dates: start: 20080620, end: 20081215
  3. ALLOPURINOL [Concomitant]
     Indication: MULTIPLE MYELOMA
     Dosage: UNK

REACTIONS (2)
  - BRADYCARDIA [None]
  - PARKINSON'S DISEASE [None]
